FAERS Safety Report 8552098 (Version 2)
Quarter: 2013Q3

REPORT INFORMATION
  Report Type: Report from Study
  Country: JP (occurrence: JP)
  Receive Date: 20120508
  Receipt Date: 20130701
  Transmission Date: 20140515
  Serious: Yes (Other)
  Sender: FDA-Public Use
  Company Number: JP-ROCHE-711007

PATIENT
  Age: 66 Year
  Sex: Female

DRUGS (16)
  1. RITUXIMAB [Suspect]
     Indication: B-CELL LYMPHOMA
     Dosage: 250 MG/M2, SINGLE
     Route: 042
  2. ZEVALIN [Suspect]
     Indication: B-CELL LYMPHOMA
     Dosage: 11.1 MBQ/KG, UNK
     Route: 042
  3. ZEVALIN [Suspect]
     Dosage: 130 MBQ, SINGLE
     Route: 042
  4. CYCLOPHOSPHAMIDE [Suspect]
     Indication: PRODUCT USED FOR UNKNOWN INDICATION
     Route: 065
  5. DOXORUBICIN HYDROCHLORIDE [Suspect]
     Indication: PRODUCT USED FOR UNKNOWN INDICATION
     Route: 065
  6. VINCRISTINE [Suspect]
     Indication: PRODUCT USED FOR UNKNOWN INDICATION
     Route: 065
  7. PREDNISOLONE [Suspect]
     Indication: PRODUCT USED FOR UNKNOWN INDICATION
     Route: 065
  8. CLADRIBINE [Suspect]
     Indication: PRODUCT USED FOR UNKNOWN INDICATION
     Route: 065
  9. MITOXANTRONE [Suspect]
     Indication: PRODUCT USED FOR UNKNOWN INDICATION
     Route: 065
  10. AMARYL [Concomitant]
     Indication: DIABETES MELLITUS
     Dosage: 0.5 MG, QD
     Route: 048
  11. LOSARTAN POTASSIUM [Concomitant]
     Indication: HYPERTENSION
     Dosage: 50 MG, QD
     Route: 048
  12. BASEN [Concomitant]
     Indication: DIABETES MELLITUS
     Dosage: 0.9 MG, QD
     Route: 048
  13. ALLEGRA [Concomitant]
     Indication: PROPHYLAXIS
     Dosage: 60 MG, SINGLE
     Route: 048
  14. CALONAL [Concomitant]
     Indication: PROPHYLAXIS
     Dosage: 400 MG, SINGLE
     Route: 048
  15. MUCOSTA [Concomitant]
     Indication: PROPHYLAXIS
     Dosage: 300 MG, QD
     Route: 048
  16. ADONA [Concomitant]
     Indication: PROPHYLAXIS
     Dosage: 90 MG, QD
     Route: 048
     Dates: start: 20090319, end: 20090410

REACTIONS (4)
  - Platelet count decreased [Recovered/Resolved]
  - White blood cell count decreased [Unknown]
  - Myelodysplastic syndrome [Not Recovered/Not Resolved]
  - Acute myeloid leukaemia [Not Recovered/Not Resolved]
